FAERS Safety Report 6736486-7 (Version None)
Quarter: 2010Q2

REPORT INFORMATION
  Report Type: 
  Country: None (occurrence: None)
  Receive Date: 20100521
  Receipt Date: 20100517
  Transmission Date: 20101027
  Serious: Yes (Other)
  Sender: FDA-Public Use
  Company Number: FR-BRISTOL-MYERS SQUIBB COMPANY-15108947

PATIENT
  Age: 64 Year
  Sex: Male

DRUGS (8)
  1. DASATINIB [Suspect]
     Indication: CHRONIC MYELOID LEUKAEMIA
     Route: 048
     Dates: start: 20051218, end: 20100402
  2. PLAVIX [Concomitant]
     Dosage: 1 DF = 75 UNIT NOS
     Dates: start: 20090727
  3. KARDEGIC [Concomitant]
     Dates: start: 20090727
  4. NEXIUM [Concomitant]
     Dates: start: 20090727
  5. COVERSYL [Concomitant]
     Dates: start: 20090727
  6. TENORMIN [Concomitant]
     Dates: start: 20090727
  7. TAHOR [Concomitant]
     Dates: start: 20090727
  8. ZYLORIC [Concomitant]
     Dates: start: 20090727

REACTIONS (1)
  - THROMBOSIS [None]
